FAERS Safety Report 8255246 (Version 2)
Quarter: 2012Q4

REPORT INFORMATION
  Report Type: 
  Country: FR (occurrence: FR)
  Receive Date: 20111118
  Receipt Date: 20121115
  Transmission Date: 20130627
  Serious: Yes (Hospitalization)
  Sender: FDA-Public Use
  Company Number: FR-SANOFI-AVENTIS-2011SA075046

PATIENT
  Age: 89 Year
  Sex: Female

DRUGS (5)
  1. PLAVIX [Suspect]
     Route: 048
     Dates: start: 20111026, end: 20111026
  2. FERROUS SULFATE [Concomitant]
     Route: 065
  3. FENOFIBRATE [Concomitant]
     Route: 065
  4. TRIMEBUTINE [Concomitant]
     Route: 065
  5. RIVOTRIL [Concomitant]
     Route: 065

REACTIONS (1)
  - Thrombocytopenia [Recovered/Resolved]
